FAERS Safety Report 7222695-X (Version None)
Quarter: 2011Q1

REPORT INFORMATION
  Report Type: 
  Country: None (occurrence: None)
  Receive Date: 20110112
  Receipt Date: 20110110
  Transmission Date: 20110831
  Serious: Yes (Other)
  Sender: FDA-Public Use
  Company Number: IL-ABBOTT-11P-082-0696336-00

PATIENT
  Age: 49 Year
  Sex: Female
  Weight: 70 kg

DRUGS (1)
  1. HUMIRA [Suspect]
     Indication: RHEUMATOID ARTHRITIS
     Dates: start: 20110110

REACTIONS (3)
  - SYNCOPE [None]
  - ASTHENIA [None]
  - VOMITING [None]
